FAERS Safety Report 24885316 (Version 1)
Quarter: 2025Q1

REPORT INFORMATION
  Report Type: Spontaneous
  Country: NZ (occurrence: NZ)
  Receive Date: 20250124
  Receipt Date: 20250124
  Transmission Date: 20250409
  Serious: Yes (Death, Other)
  Sender: MERCK
  Company Number: NZ-009507513-2501NZL008966

PATIENT
  Age: 84 Year
  Sex: Male

DRUGS (1)
  1. PEMBROLIZUMAB [Suspect]
     Active Substance: PEMBROLIZUMAB
     Indication: Malignant melanoma
     Dosage: 400 MILLIGRAM, EVERY 6 WEEKS
     Route: 042
     Dates: start: 20241127, end: 20241127

REACTIONS (5)
  - Cardiac arrest [Fatal]
  - Bulbar palsy [Fatal]
  - Ophthalmoplegia [Fatal]
  - Myasthenia gravis [Fatal]
  - Myositis [Fatal]

NARRATIVE: CASE EVENT DATE: 20241214
